FAERS Safety Report 17176935 (Version 1)
Quarter: 2019Q4

REPORT INFORMATION
  Report Type: Spontaneous
  Country: US (occurrence: US)
  Receive Date: 20191219
  Receipt Date: 20191219
  Transmission Date: 20200122
  Serious: No
  Sender: FDA-Public Use
  Company Number: US-GLAXOSMITHKLINE-US2019225172

PATIENT
  Age: 15 Year
  Sex: Female

DRUGS (4)
  1. LAMICTAL XR [Suspect]
     Active Substance: LAMOTRIGINE
     Indication: DEPRESSED MOOD
     Dosage: UNK
     Route: 065
     Dates: start: 201906
  2. LAMICTAL XR [Suspect]
     Active Substance: LAMOTRIGINE
     Indication: ANXIETY
  3. LAMOTRIGINE PROLONGED-RELEASE TABLET [Suspect]
     Active Substance: LAMOTRIGINE
     Indication: DEPRESSED MOOD
     Dosage: UNK
     Route: 065
  4. LAMOTRIGINE PROLONGED-RELEASE TABLET [Suspect]
     Active Substance: LAMOTRIGINE
     Indication: ANXIETY

REACTIONS (5)
  - Adverse drug reaction [Unknown]
  - Product use in unapproved indication [Unknown]
  - Drug effective for unapproved indication [Unknown]
  - Product substitution issue [Unknown]
  - Drug ineffective for unapproved indication [Unknown]
